FAERS Safety Report 9798996 (Version 1)
Quarter: 2014Q1

REPORT INFORMATION
  Report Type: Spontaneous
  Country: US (occurrence: US)
  Receive Date: 20140106
  Receipt Date: 20140106
  Transmission Date: 20141002
  Serious: Yes (Other)
  Sender: FDA-Public Use
  Company Number: US-CELGENEUS-163-21880-13125139

PATIENT
  Age: 89 Year
  Sex: Female
  Weight: 59.93 kg

DRUGS (6)
  1. REVLIMID [Suspect]
     Indication: LYMPHOMA
     Dosage: 15 MILLIGRAM
     Route: 048
     Dates: start: 20131216
  2. AMLODIPINE [Concomitant]
     Indication: HYPERTENSION
     Route: 065
  3. SOTALOL [Concomitant]
     Indication: HYPERTENSION
     Route: 065
  4. CARVEDILOL [Concomitant]
     Indication: HYPERTENSION
     Route: 065
  5. OMEPRAZOLE [Concomitant]
     Indication: GASTROOESOPHAGEAL REFLUX DISEASE
     Route: 065
  6. PAXIL [Concomitant]
     Indication: DEPRESSION
     Route: 065

REACTIONS (3)
  - Skin disorder [Unknown]
  - Hip fracture [Unknown]
  - Thrombocytopenia [Recovering/Resolving]
